FAERS Safety Report 23267289 (Version 1)
Quarter: 2023Q4

REPORT INFORMATION
  Report Type: Spontaneous
  Country: AT (occurrence: AT)
  Receive Date: 20231206
  Receipt Date: 20231206
  Transmission Date: 20240110
  Serious: Yes (Other)
  Sender: FDA-Public Use
  Company Number: AT-PFIZER INC-PV202300173073

PATIENT
  Age: 75 Year
  Sex: Male

DRUGS (1)
  1. LORLATINIB [Suspect]
     Active Substance: LORLATINIB
     Dosage: 100 MG
     Dates: start: 2023

REACTIONS (6)
  - Hallucination, visual [Unknown]
  - Pleural effusion [Unknown]
  - Ataxia [Unknown]
  - Memory impairment [Unknown]
  - Oedema peripheral [Unknown]
  - Irritability [Unknown]

NARRATIVE: CASE EVENT DATE: 20230101
